FAERS Safety Report 8377866-6 (Version None)
Quarter: 2012Q2

REPORT INFORMATION
  Report Type: 
  Country: None (occurrence: None)
  Receive Date: 20120522
  Receipt Date: 20120510
  Transmission Date: 20120825
  Serious: No
  Sender: FDA-Public Use
  Company Number: US-ASTRAZENECA-2012SE30699

PATIENT
  Age: 46 Year
  Sex: Female
  Weight: 93.4 kg

DRUGS (14)
  1. SYMBICORT [Suspect]
     Dosage: 80/4.5 MCG, 2 PUFFS BID
     Route: 055
     Dates: start: 20120209
  2. HYDROXYZINE [Concomitant]
     Indication: ANXIETY
  3. NEXIUM [Suspect]
     Route: 048
     Dates: start: 20110111
  4. CRESTOR [Suspect]
     Route: 048
     Dates: start: 20100901
  5. COLESVELAM [Concomitant]
  6. FENOFIBRATE [Concomitant]
  7. HYDROXYZINE [Concomitant]
     Indication: PRURITUS
  8. MIRTAZAPINE [Concomitant]
  9. RISPERIDONE [Concomitant]
  10. HYDROCODONE BITARTRATE + ACETAMINOPHEN [Concomitant]
  11. LEVALBUTEROL HCL [Concomitant]
     Indication: WHEEZING
  12. LISINOPRIL [Suspect]
     Route: 048
     Dates: start: 20100901
  13. VENLAFAXINE [Concomitant]
  14. ALPRAZOLAM [Concomitant]

REACTIONS (7)
  - LIGAMENT SPRAIN [None]
  - COLONIC POLYP [None]
  - MUSCLE STRAIN [None]
  - MUSCLE SPASMS [None]
  - INSOMNIA [None]
  - PLEURISY [None]
  - BACK PAIN [None]
